FAERS Safety Report 8406732-2 (Version None)
Quarter: 2012Q2

REPORT INFORMATION
  Report Type: 
  Country: None (occurrence: None)
  Receive Date: 20120529
  Receipt Date: 20060210
  Transmission Date: 20120825
  Serious: Yes (Hospitalization)
  Sender: FDA-Public Use
  Company Number: 15691-USA-06-0474

PATIENT
  Age: 74 Year
  Sex: Male

DRUGS (6)
  1. ACENOCOUMAROL (ACENOCOUMAROL) [Concomitant]
  2. AMIODARONE HCL [Concomitant]
  3. TOLVAPTAN (TOLVAPTAN(V4.1)) 30MG [Suspect]
     Indication: CARDIAC FAILURE CONGESTIVE
     Dosage: 30 MG, QD, ORAL
     Route: 048
     Dates: start: 20060213
  4. TOLVAPTAN (TOLVAPTAN(V4.1)) 30MG [Suspect]
     Indication: CARDIAC FAILURE CONGESTIVE
     Dosage: 30 MG, QD, ORAL
     Route: 048
     Dates: start: 20040924, end: 20060210
  5. SIMVASTATIN [Concomitant]
  6. ENALAPRIL MALEATE [Concomitant]

REACTIONS (1)
  - CARDIAC FAILURE [None]
